FAERS Safety Report 15014220 (Version 3)
Quarter: 2018Q3

REPORT INFORMATION
  Report Type: Spontaneous
  Country: JP (occurrence: JP)
  Receive Date: 20180615
  Receipt Date: 20180813
  Transmission Date: 20181010
  Serious: Yes (Other)
  Sender: FDA-Public Use
  Company Number: PHJP2018JP010261

PATIENT
  Age: 95 Year
  Sex: Male

DRUGS (4)
  1. VEGAMOX OPHTHALMIC SOLUTION 0.5% [Suspect]
     Active Substance: MOXIFLOXACIN HYDROCHLORIDE
     Indication: PREOPERATIVE CARE
     Dosage: UNK UNK, QID
     Route: 047
     Dates: start: 20180427, end: 20180427
  2. FLOMOX [Concomitant]
     Active Substance: CEFCAPENE PIVOXIL HYDROCHLORIDE HYDRATE
     Indication: PRODUCT USED FOR UNKNOWN INDICATION
     Dosage: UNK
     Route: 048
  3. VEGAMOX OPHTHALMIC SOLUTION 0.5% [Suspect]
     Active Substance: MOXIFLOXACIN HYDROCHLORIDE
     Dosage: UNK, BID
     Route: 047
     Dates: start: 20180503
  4. ASPIRIN. [Concomitant]
     Active Substance: ASPIRIN
     Indication: PRODUCT USED FOR UNKNOWN INDICATION
     Dosage: UNK
     Route: 065

REACTIONS (6)
  - Eyelid oedema [Recovered/Resolved]
  - Eye discharge [Unknown]
  - Conjunctivitis [Recovering/Resolving]
  - Ocular hyperaemia [Recovered/Resolved]
  - Blepharitis allergic [Recovered/Resolved]
  - Angioedema [Recovered/Resolved]

NARRATIVE: CASE EVENT DATE: 20180503
